FAERS Safety Report 9860764 (Version 1)
Quarter: 2014Q1

REPORT INFORMATION
  Report Type: Spontaneous
  Country: JP (occurrence: JP)
  Receive Date: 20140202
  Receipt Date: 20140202
  Transmission Date: 20141002
  Serious: Yes (Death)
  Sender: FDA-Public Use
  Company Number: JP-ALLERGAN-1301172US

PATIENT
  Age: 55 Year
  Sex: Male

DRUGS (1)
  1. BOTOX [Suspect]
     Indication: MUSCLE SPASMS
     Dosage: 150 UNITS, SINGLE
     Route: 030
     Dates: start: 20110903, end: 20110903

REACTIONS (2)
  - Pneumonia [Fatal]
  - Off label use [Unknown]
